FAERS Safety Report 16510119 (Version 1)
Quarter: 2019Q3

REPORT INFORMATION
  Report Type: Report from Study
  Country: AU (occurrence: AU)
  Receive Date: 20190701
  Receipt Date: 20190701
  Transmission Date: 20191004
  Serious: Yes (Other)
  Sender: FDA-Public Use
  Company Number: PHHY2019AU151121

PATIENT
  Sex: Female

DRUGS (1)
  1. COSENTYX [Suspect]
     Active Substance: SECUKINUMAB
     Indication: PSORIATIC ARTHROPATHY
     Dosage: UNK, QW
     Route: 058
     Dates: start: 20190531

REACTIONS (5)
  - Swelling [Recovered/Resolved]
  - Tonsillitis [Unknown]
  - Acne cystic [Recovered/Resolved]
  - Lower respiratory tract infection [Unknown]
  - Mass [Recovered/Resolved]
